FAERS Safety Report 9217349 (Version 2)
Quarter: 2013Q2

REPORT INFORMATION
  Report Type: Spontaneous
  Country: US (occurrence: US)
  Receive Date: 20130408
  Receipt Date: 20130508
  Transmission Date: 20140414
  Serious: No
  Sender: FDA-Public Use
  Company Number: US-ROXANE LABORATORIES, INC.-2013-RO-00449RO

PATIENT
  Age: 72 Year
  Sex: Female
  Weight: 50 kg

DRUGS (11)
  1. MONTELUKAST SODIUM [Suspect]
     Indication: ASTHMA
     Dosage: 10 MG
     Route: 048
     Dates: start: 20130301
  2. SPIRIVA [Concomitant]
     Indication: ASTHMA
  3. SPIRIVA [Concomitant]
     Indication: CHRONIC OBSTRUCTIVE PULMONARY DISEASE
  4. LEVOXYL [Concomitant]
     Indication: HYPOTHYROIDISM
  5. DICYCLOMINE [Concomitant]
     Indication: IRRITABLE BOWEL SYNDROME
     Dosage: 30 MG
     Dates: start: 2012
  6. VENLAFAXINE [Concomitant]
     Indication: DEPRESSION
     Dosage: 75 MG
     Dates: start: 2012
  7. VENLAFAXINE [Concomitant]
     Indication: ANXIETY
  8. OXCARBAZEPINE [Concomitant]
     Indication: BIPOLAR DISORDER
     Dosage: 300 MG
     Dates: start: 2013
  9. VENTOLIN [Concomitant]
     Indication: ASTHMA
  10. AZELASTINE [Concomitant]
     Indication: SEASONAL ALLERGY
  11. AZELASTINE [Concomitant]
     Indication: HYPERSENSITIVITY

REACTIONS (4)
  - Constipation [Not Recovered/Not Resolved]
  - Fatigue [Not Recovered/Not Resolved]
  - Vision blurred [Recovered/Resolved]
  - Diarrhoea [Recovered/Resolved]
